FAERS Safety Report 4565358-1 (Version None)
Quarter: 2005Q1

REPORT INFORMATION
  Report Type: 
  Country: None (occurrence: None)
  Receive Date: 20050126
  Receipt Date: 20050107
  Transmission Date: 20050727
  Serious: Yes (Death, Other)
  Sender: FDA-Public Use
  Company Number: USA041286275

PATIENT
  Age: 62 Year
  Sex: Female

DRUGS (3)
  1. GEMZAR [Suspect]
     Indication: LUNG ADENOCARCINOMA
     Dosage: 1680 MG
     Dates: start: 20040901, end: 20041025
  2. GEMZAR [Suspect]
     Indication: LUNG CANCER METASTATIC
     Dosage: 1680 MG
     Dates: start: 20040901, end: 20041025
  3. TAXOTERE [Concomitant]

REACTIONS (8)
  - ACUTE RESPIRATORY DISTRESS SYNDROME [None]
  - DISEASE PROGRESSION [None]
  - DYSPNOEA [None]
  - FIBROSIS [None]
  - GENERAL PHYSICAL HEALTH DETERIORATION [None]
  - HYPOXIA [None]
  - PNEUMONIA [None]
  - PULMONARY TOXICITY [None]
